FAERS Safety Report 7260768-6 (Version None)
Quarter: 2011Q1

REPORT INFORMATION
  Report Type: 
  Country: None (occurrence: None)
  Receive Date: 20110130
  Receipt Date: 20101220
  Transmission Date: 20110831
  Serious: No
  Sender: FDA-Public Use
  Company Number: US-ABBOTT-10P-163-0693548-00

PATIENT
  Sex: Male
  Weight: 81.72 kg

DRUGS (7)
  1. SIMVASTATIN [Concomitant]
     Indication: BLOOD CHOLESTEROL INCREASED
     Dosage: NOT REPORTED
  2. METFORMIN [Concomitant]
     Indication: DIABETES MELLITUS
  3. ADVAIR [Concomitant]
     Indication: CHRONIC OBSTRUCTIVE PULMONARY DISEASE
  4. HUMIRA [Suspect]
     Indication: RHEUMATOID ARTHRITIS
     Dates: start: 20101001
  5. ATROVENT [Concomitant]
     Indication: CHRONIC OBSTRUCTIVE PULMONARY DISEASE
  6. METOPROLOL [Concomitant]
     Indication: HYPERTENSION
     Dosage: NOT REPORTED
  7. GLYBURIDE [Concomitant]
     Indication: DIABETES MELLITUS
     Dosage: NOT REPORTED

REACTIONS (2)
  - INJECTION SITE PAIN [None]
  - ARTHRALGIA [None]
